FAERS Safety Report 9988943 (Version 2)
Quarter: 2014Q1

REPORT INFORMATION
  Report Type: Report from Study
  Country: US (occurrence: US)
  Receive Date: 20140310
  Receipt Date: 20140310
  Transmission Date: 20141002
  Serious: Yes (Hospitalization)
  Sender: FDA-Public Use
  Company Number: US-ABBVIE-13P-163-1117652-00

PATIENT
  Age: 30 Year
  Sex: Female
  Weight: 59.93 kg

DRUGS (4)
  1. HUMIRA [Suspect]
     Indication: CROHN^S DISEASE
     Dates: start: 201202, end: 201307
  2. HUMIRA [Suspect]
     Dates: start: 20130710
  3. ANTIBIOTICS [Suspect]
     Indication: UPPER RESPIRATORY TRACT INFECTION
  4. CITALOPRAM [Concomitant]
     Indication: DEPRESSION

REACTIONS (8)
  - Abdominal pain upper [Not Recovered/Not Resolved]
  - Abdominal pain upper [Not Recovered/Not Resolved]
  - Diarrhoea [Recovered/Resolved]
  - Vomiting [Recovered/Resolved]
  - Clostridium difficile infection [Recovered/Resolved]
  - Diarrhoea [Unknown]
  - Vomiting [Unknown]
  - Upper respiratory tract infection [Recovered/Resolved]
